FAERS Safety Report 12902300 (Version 3)
Quarter: 2016Q4

REPORT INFORMATION
  Report Type: Spontaneous
  Country: DE (occurrence: DE)
  Receive Date: 20161102
  Receipt Date: 20161209
  Transmission Date: 20170207
  Serious: Yes (Hospitalization, Disabling, Other)
  Sender: FDA-Public Use
  Company Number: DE-009507513-1610DEU014601

PATIENT
  Age: 77 Year
  Sex: Male
  Weight: 85.7 kg

DRUGS (10)
  1. BISOPROLOL [Concomitant]
     Active Substance: BISOPROLOL
     Dosage: 10 MG, ONCE DAILY
     Route: 048
  2. ATORVASTATIN 1A PHARMA [Concomitant]
     Dosage: 10 MG ONCE DAILY
  3. ZOPICLONE [Concomitant]
     Active Substance: ZOPICLONE
     Dosage: 7.5 MG, ONCE DAILY
     Route: 048
  4. GLIMEPIRIDE. [Concomitant]
     Active Substance: GLIMEPIRIDE
     Dosage: 2 MG TWICE DAILY
  5. MONO EMBOLEX [Concomitant]
     Active Substance: CERTOPARIN SODIUM
     Dosage: 8000 IU TWICE DAILY
  6. NOVAMINSULFON [Concomitant]
     Active Substance: METAMIZOLE
     Dosage: UNK
  7. VELMETIA [Suspect]
     Active Substance: METFORMIN\SITAGLIPTIN
     Indication: TYPE 2 DIABETES MELLITUS
     Dosage: 50/1000 MG TABLET TWICE DAILY
     Route: 048
     Dates: start: 201411
  8. ENAHEXAL COMP [Concomitant]
     Active Substance: ENALAPRIL MALEATE\HYDROCHLOROTHIAZIDE
     Dosage: UNK, ONCE DAILY
  9. DIGIMERCK [Concomitant]
     Active Substance: DIGITOXIN
     Dosage: 0.1 ONCE DAILY
  10. AMLODIPIN HEXAL (AMLODIPINE BESYLATE) [Concomitant]
     Dosage: 5 MG ONCE DAILY

REACTIONS (1)
  - Pancreatic neuroendocrine tumour [Not Recovered/Not Resolved]

NARRATIVE: CASE EVENT DATE: 2016
